FAERS Safety Report 23129863 (Version 2)
Quarter: 2023Q4

REPORT INFORMATION
  Report Type: Spontaneous
  Country: FR (occurrence: FR)
  Receive Date: 20231031
  Receipt Date: 20231215
  Transmission Date: 20240109
  Serious: Yes (Other)
  Sender: FDA-Public Use
  Company Number: None

PATIENT
  Age: 57 Year
  Sex: Male

DRUGS (5)
  1. ALIMTA [Suspect]
     Active Substance: PEMETREXED DISODIUM
     Indication: Lung adenocarcinoma
     Dosage: 1 DOSAGE FORM, UNKNOWN
     Route: 042
     Dates: start: 202303, end: 202307
  2. ALIMTA [Suspect]
     Active Substance: PEMETREXED DISODIUM
     Dosage: 1 DOSAGE FORM, UNKNOWN
     Route: 042
     Dates: start: 202307, end: 20230908
  3. ALIMTA [Suspect]
     Active Substance: PEMETREXED DISODIUM
     Dosage: 1 DOSAGE FORM, UNKNOWN
     Route: 042
     Dates: start: 20230908, end: 20230908
  4. KEYTRUDA [Suspect]
     Active Substance: PEMBROLIZUMAB
     Indication: Lung adenocarcinoma
     Dosage: 1 DOSAGE FORM, UNKNOWN
     Route: 042
     Dates: start: 202303, end: 20230908
  5. KEYTRUDA [Suspect]
     Active Substance: PEMBROLIZUMAB
     Dosage: 1 DOSAGE FORM, UNKNOWN
     Route: 042
     Dates: start: 20230908

REACTIONS (2)
  - Rosacea [Recovering/Resolving]
  - Dermo-hypodermitis [Recovering/Resolving]

NARRATIVE: CASE EVENT DATE: 20230701
